FAERS Safety Report 21025235 (Version 1)
Quarter: 2022Q2

REPORT INFORMATION
  Report Type: Spontaneous
  Country: CN (occurrence: CN)
  Receive Date: 20220630
  Receipt Date: 20220630
  Transmission Date: 20220721
  Serious: Yes (Other)
  Sender: FDA-Public Use
  Company Number: CN-AMGEN-CHNSP2022110515

PATIENT
  Age: 23 Year
  Sex: Male

DRUGS (6)
  1. FILGRASTIM [Suspect]
     Active Substance: FILGRASTIM
     Indication: Prophylaxis
     Dosage: UNK
     Route: 065
  2. VENETOCLAX [Concomitant]
     Active Substance: VENETOCLAX
     Indication: Acute promyelocytic leukaemia
     Dosage: 100 MILLIGRAM, DAY 1
  3. VENETOCLAX [Concomitant]
     Active Substance: VENETOCLAX
     Dosage: 200 MILLIGRAM, DAY 2
  4. VENETOCLAX [Concomitant]
     Active Substance: VENETOCLAX
     Dosage: 400 MILLIGRAM, DAY 3 TO 8
  5. CYTARABINE [Concomitant]
     Active Substance: CYTARABINE
  6. ACLARUBICIN [Concomitant]
     Active Substance: ACLARUBICIN

REACTIONS (2)
  - Neutropenia [Unknown]
  - Thrombocytopenia [Unknown]
